FAERS Safety Report 14883500 (Version 3)
Quarter: 2018Q3

REPORT INFORMATION
  Report Type: Report from Study
  Country: US (occurrence: US)
  Receive Date: 20180511
  Receipt Date: 20180803
  Transmission Date: 20181010
  Serious: Yes (Other)
  Sender: FDA-Public Use
  Company Number: US-MYLANLABS-2018M1030736

PATIENT
  Sex: Male
  Weight: 82 kg

DRUGS (1)
  1. GLATIRAMER ACETATE INJECTION [Suspect]
     Active Substance: GLATIRAMER ACETATE
     Indication: RELAPSING-REMITTING MULTIPLE SCLEROSIS
     Dosage: 40 MG, 3XW
     Route: 058

REACTIONS (7)
  - Oral pain [Recovering/Resolving]
  - Relapsing-remitting multiple sclerosis [Unknown]
  - Injection site reaction [Unknown]
  - Oropharyngeal pain [Recovering/Resolving]
  - White blood cell count decreased [Unknown]
  - White blood cell count increased [Unknown]
  - Dysphagia [Recovering/Resolving]
